FAERS Safety Report 13176144 (Version 1)
Quarter: 2017Q1

REPORT INFORMATION
  Report Type: Spontaneous
  Country: US (occurrence: US)
  Receive Date: 20170201
  Receipt Date: 20170201
  Transmission Date: 20170428
  Serious: No
  Sender: FDA-Public Use
  Company Number: US-PERRIGO-16US022496

PATIENT
  Age: 63 Year
  Sex: Female
  Weight: 81.63 kg

DRUGS (3)
  1. IBUPROFEN. [Suspect]
     Active Substance: IBUPROFEN
     Indication: ARTHRALGIA
     Dosage: 400 MG, BID, PRN
     Route: 048
     Dates: start: 2014, end: 201611
  2. IBUPROFEN. [Suspect]
     Active Substance: IBUPROFEN
     Dosage: 400 TO 600 MG, BID, PRN
     Route: 048
     Dates: start: 201611, end: 201612
  3. XANAX [Concomitant]
     Active Substance: ALPRAZOLAM
     Indication: GASTROINTESTINAL DISORDER
     Dosage: UNK
     Route: 048
     Dates: start: 2015

REACTIONS (2)
  - Incorrect dose administered [Recovered/Resolved]
  - Drug effect decreased [Unknown]

NARRATIVE: CASE EVENT DATE: 201611
